FAERS Safety Report 4299301-X (Version None)
Quarter: 2004Q1

REPORT INFORMATION
  Report Type: 
  Country: None (occurrence: None)
  Receive Date: 20040217
  Receipt Date: 20040206
  Transmission Date: 20041129
  Serious: Yes (Hospitalization)
  Sender: FDA-Public Use
  Company Number: 2003UW15001

PATIENT
  Age: 47 Year
  Sex: Female
  Weight: 68.0396 kg

DRUGS (5)
  1. DIPRIVAN [Suspect]
     Indication: INDUCTION OF ANAESTHESIA
     Dosage: 200 MG IV
     Route: 042
     Dates: start: 20031105, end: 20031105
  2. ANTABUSE [Suspect]
     Indication: ALCOHOLISM
     Dosage: 200 MG QD
  3. LEVOTHYROXINE SODIUM [Concomitant]
  4. VERSED [Concomitant]
  5. SEVOFLURANE [Concomitant]

REACTIONS (6)
  - DIZZINESS [None]
  - DRUG INTERACTION [None]
  - DRUG SCREEN POSITIVE [None]
  - GRAND MAL CONVULSION [None]
  - TONIC CLONIC MOVEMENTS [None]
  - TREMOR [None]
